FAERS Safety Report 9638727 (Version 1)
Quarter: 2013Q4

REPORT INFORMATION
  Report Type: Spontaneous
  Country: US (occurrence: US)
  Receive Date: 20131022
  Receipt Date: 20131022
  Transmission Date: 20140711
  Serious: No
  Sender: FDA-Public Use
  Company Number: US-BRISTOL-MYERS SQUIBB COMPANY-19232198

PATIENT
  Age: 78 Year
  Sex: Male
  Weight: 98.41 kg

DRUGS (4)
  1. ELIQUIS [Suspect]
     Indication: ATRIAL FIBRILLATION
  2. SPIRIVA [Concomitant]
     Indication: BRONCHITIS CHRONIC
  3. RESTASIS [Concomitant]
     Indication: EYE DISORDER
  4. FLONASE [Concomitant]
     Indication: HYPERSENSITIVITY

REACTIONS (1)
  - Prostatic disorder [Unknown]
